FAERS Safety Report 16972210 (Version 1)
Quarter: 2019Q4

REPORT INFORMATION
  Report Type: Spontaneous
  Country: US (occurrence: US)
  Receive Date: 20191029
  Receipt Date: 20191029
  Transmission Date: 20200122
  Serious: No
  Sender: FDA-Public Use
  Company Number: US-MATRIXX INITIATIVES, INC.-2076155

PATIENT
  Age: 59 Year
  Sex: Male
  Weight: 91.82 kg

DRUGS (3)
  1. ZICAM COLD REMEDY NASAL SPRAY [Suspect]
     Active Substance: HOMEOPATHICS
     Indication: NASOPHARYNGITIS
     Route: 045
  2. MULTIVITAMINS [Concomitant]
     Active Substance: VITAMINS
  3. ROSUVASTATIN CALCIUM. [Concomitant]
     Active Substance: ROSUVASTATIN CALCIUM

REACTIONS (2)
  - Anosmia [Not Recovered/Not Resolved]
  - Paranasal sinus discomfort [Recovered/Resolved]
